FAERS Safety Report 8491732-7 (Version None)
Quarter: 2012Q3

REPORT INFORMATION
  Report Type: 
  Country: None (occurrence: None)
  Receive Date: 20120706
  Receipt Date: 20120703
  Transmission Date: 20120928
  Serious: Yes (Other)
  Sender: FDA-Public Use
  Company Number: US-PFIZER INC-2012159944

PATIENT
  Sex: Female
  Weight: 54 kg

DRUGS (4)
  1. AMBIEN [Concomitant]
     Indication: INSOMNIA
     Dosage: 5 MG, DAILY
  2. CELEBREX [Suspect]
  3. CELEBREX [Suspect]
     Indication: ARTHRITIS
     Dosage: 200 MG, UNK
     Dates: start: 20120501
  4. AMBIEN [Concomitant]
     Indication: CHRONIC FATIGUE SYNDROME

REACTIONS (8)
  - SINUSITIS [None]
  - PERTUSSIS [None]
  - TINNITUS [None]
  - RHINORRHOEA [None]
  - PNEUMONIA [None]
  - SINUS DISORDER [None]
  - RESPIRATORY DISORDER [None]
  - ASTHENIA [None]
